FAERS Safety Report 25180741 (Version 1)
Quarter: 2025Q2

REPORT INFORMATION
  Report Type: Spontaneous
  Country: US (occurrence: US)
  Receive Date: 20250409
  Receipt Date: 20250409
  Transmission Date: 20250717
  Serious: Yes (Other)
  Sender: NORTHSTAR
  Company Number: US-NORTHSTAR RX LLC-US-2025NSR000005

PATIENT
  Age: 68 Year
  Sex: Male

DRUGS (1)
  1. BACLOFEN [Suspect]
     Active Substance: BACLOFEN
     Indication: Hiccups
     Route: 065

REACTIONS (5)
  - Delirium [Unknown]
  - Seizure [Recovering/Resolving]
  - Dyskinesia [Unknown]
  - Myoclonus [Unknown]
  - Off label use [Recovered/Resolved]
